FAERS Safety Report 21598204 (Version 4)
Quarter: 2022Q4

REPORT INFORMATION
  Report Type: Report from Study
  Country: US (occurrence: US)
  Receive Date: 20221115
  Receipt Date: 20221215
  Transmission Date: 20230112
  Serious: Yes (Other)
  Sender: FDA-Public Use
  Company Number: US-HORIZON THERAPEUTICS-HZN-2022-008763

PATIENT

DRUGS (9)
  1. TEPEZZA [Suspect]
     Active Substance: TEPROTUMUMAB-TRBW
     Indication: Endocrine ophthalmopathy
     Dosage: 600 MG, FIRST INFUSION
     Route: 042
     Dates: start: 20220810
  2. TEPEZZA [Suspect]
     Active Substance: TEPROTUMUMAB-TRBW
     Dosage: 1000 MG, 2ND INFUSION
     Route: 042
     Dates: start: 20220831
  3. TEPEZZA [Suspect]
     Active Substance: TEPROTUMUMAB-TRBW
     Dosage: 1000 MG, 3RD INFUSION
     Route: 042
     Dates: start: 20220921
  4. TEPEZZA [Suspect]
     Active Substance: TEPROTUMUMAB-TRBW
     Dosage: 1000 MG, 4TH INFUSION
     Route: 042
     Dates: start: 20221012
  5. TEPEZZA [Suspect]
     Active Substance: TEPROTUMUMAB-TRBW
     Dosage: 1000 MG, 5TH INFUSION
     Route: 042
     Dates: start: 20221104
  6. METHIMAZOLE [Concomitant]
     Active Substance: METHIMAZOLE
     Indication: Basedow^s disease
     Dosage: 5 MG, QD
  7. PROPRANOLOL [Concomitant]
     Active Substance: PROPRANOLOL HYDROCHLORIDE
     Indication: Basedow^s disease
     Dosage: 20 MG, TID
  8. ROSUVASTATIN [Concomitant]
     Active Substance: ROSUVASTATIN
     Indication: Hypercholesterolaemia
     Dosage: 40 MG, QD
  9. PANTOPRAZOLE [Concomitant]
     Active Substance: PANTOPRAZOLE
     Indication: Gastrooesophageal reflux disease
     Dosage: 40 MG, QD

REACTIONS (10)
  - Melaena [Recovering/Resolving]
  - Thyroid disorder [Unknown]
  - Blood pressure increased [Recovering/Resolving]
  - Stomatitis [Recovering/Resolving]
  - Weight decreased [Unknown]
  - Dry mouth [Recovering/Resolving]
  - Sensation of foreign body [Recovering/Resolving]
  - Diarrhoea [Recovered/Resolved]
  - Blood glucose increased [Unknown]
  - Dysphagia [Unknown]

NARRATIVE: CASE EVENT DATE: 20220101
